FAERS Safety Report 16353987 (Version 2)
Quarter: 2019Q3

REPORT INFORMATION
  Report Type: Spontaneous
  Country: CA (occurrence: CA)
  Receive Date: 20190524
  Receipt Date: 20190701
  Transmission Date: 20191004
  Serious: Yes (Other)
  Sender: FDA-Public Use
  Company Number: CA-PFIZER INC-2019161947

PATIENT
  Age: 44 Year
  Sex: Female

DRUGS (4)
  1. XELJANZ [Suspect]
     Active Substance: TOFACITINIB CITRATE
     Indication: RHEUMATOID ARTHRITIS
     Dosage: 5 MG, 2X/DAY (BID)
     Route: 048
     Dates: start: 20190429
  2. HYDROMORPHONE [Concomitant]
     Active Substance: HYDROMORPHONE
     Indication: PAIN
     Route: 065
  3. TYLENOL ARTHRITIS PAIN [Concomitant]
     Active Substance: ACETAMINOPHEN
     Dosage: UNK
     Route: 065
  4. PREDNISONE. [Concomitant]
     Active Substance: PREDNISONE
     Dosage: UNK
     Route: 048

REACTIONS (15)
  - Drug ineffective [Unknown]
  - Arthralgia [Unknown]
  - Menstrual disorder [Unknown]
  - Pain [Unknown]
  - Pain in extremity [Unknown]
  - Finger deformity [Unknown]
  - Cyanosis [Unknown]
  - Limb deformity [Unknown]
  - Oropharyngeal pain [Not Recovered/Not Resolved]
  - Peripheral swelling [Unknown]
  - Mobility decreased [Unknown]
  - Decreased appetite [Unknown]
  - Migraine [Not Recovered/Not Resolved]
  - Gait disturbance [Unknown]
  - Inflammation [Unknown]
